FAERS Safety Report 8785344 (Version 2)
Quarter: 2012Q4

REPORT INFORMATION
  Report Type: 
  Country: US (occurrence: US)
  Receive Date: 20120914
  Receipt Date: 20120928
  Transmission Date: 20130627
  Serious: No
  Sender: FDA-Public Use
  Company Number: US-PFIZER INC-2012223453

PATIENT
  Age: 72 Year
  Sex: Male
  Weight: 77.1 kg

DRUGS (2)
  1. SUTENT [Suspect]
     Indication: RENAL CANCER
     Dosage: 25 mg, 1x/day
     Route: 048
     Dates: start: 20120131, end: 201207
  2. SUTENT [Suspect]
     Indication: LUNG NEOPLASM MALIGNANT
     Dosage: 12.5 mg, 1x/day
     Route: 048
     Dates: start: 20120131, end: 201207

REACTIONS (1)
  - Chemical injury [Recovering/Resolving]
